FAERS Safety Report 6024621-8 (Version None)
Quarter: 2008Q4

REPORT INFORMATION
  Report Type: 
  Country: None (occurrence: None)
  Receive Date: 20081231
  Receipt Date: 20081219
  Transmission Date: 20090506
  Serious: Yes (Other)
  Sender: FDA-Public Use
  Company Number: CN-PFIZER INC-2008099290

PATIENT
  Age: 75 Year
  Sex: Male

DRUGS (1)
  1. SUTENT [Suspect]
     Indication: LUNG NEOPLASM MALIGNANT
     Dosage: UNK
     Route: 048
     Dates: start: 20081101, end: 20081201

REACTIONS (2)
  - ASTHENIA [None]
  - HYPOGLYCAEMIA [None]
